FAERS Safety Report 16710691 (Version 1)
Quarter: 2019Q3

REPORT INFORMATION
  Report Type: Spontaneous
  Country: FR (occurrence: FR)
  Receive Date: 20190816
  Receipt Date: 20190816
  Transmission Date: 20191004
  Serious: Yes (Death, Hospitalization, Other)
  Sender: FDA-Public Use
  Company Number: FR-ASTRAZENECA-2019SF16151

PATIENT
  Age: 23142 Day
  Sex: Male
  Weight: 57 kg

DRUGS (5)
  1. IMOVANE [Concomitant]
     Active Substance: ZOPICLONE
     Route: 048
  2. DUROGESIC [Concomitant]
     Active Substance: FENTANYL
     Route: 062
  3. PENTASA [Concomitant]
     Active Substance: MESALAMINE
  4. PANTOPRAZOLE [Concomitant]
     Active Substance: PANTOPRAZOLE
     Route: 048
     Dates: end: 20180808
  5. IMFINZI [Suspect]
     Active Substance: DURVALUMAB
     Indication: NON-SMALL CELL LUNG CANCER
     Dosage: 10.0MG/KG UNKNOWN
     Route: 042
     Dates: start: 20181220, end: 20190627

REACTIONS (16)
  - General physical health deterioration [Not Recovered/Not Resolved]
  - Tachycardia [Unknown]
  - Fatigue [Not Recovered/Not Resolved]
  - Sepsis [Fatal]
  - Lung infection [Unknown]
  - Pancytopenia [Not Recovered/Not Resolved]
  - Neutropenia [Unknown]
  - Insomnia [Not Recovered/Not Resolved]
  - Weight decreased [Not Recovered/Not Resolved]
  - Staphylococcus test positive [Unknown]
  - Red blood cell count decreased [Unknown]
  - Pneumonia [Not Recovered/Not Resolved]
  - Confusional state [Unknown]
  - Hyperthermia [Unknown]
  - Haemoglobin decreased [Unknown]
  - Pleural effusion [Unknown]

NARRATIVE: CASE EVENT DATE: 20190626
